FAERS Safety Report 23403492 (Version 1)
Quarter: 2024Q1

REPORT INFORMATION
  Report Type: Report from Study
  Country: US (occurrence: US)
  Receive Date: 20240116
  Receipt Date: 20240116
  Transmission Date: 20240409
  Serious: Yes (Other)
  Sender: FDA-Public Use
  Company Number: US-TEVA-2023-US-2932615

PATIENT
  Age: 58 Year

DRUGS (1)
  1. AUSTEDO [Suspect]
     Active Substance: DEUTETRABENAZINE
     Indication: Huntington^s disease
     Route: 065
     Dates: start: 20230729, end: 2023

REACTIONS (6)
  - Exophthalmos [Unknown]
  - Thinking abnormal [Unknown]
  - Confusional state [Unknown]
  - Depression [Unknown]
  - Decreased appetite [Unknown]
  - Wrong technique in product usage process [Unknown]

NARRATIVE: CASE EVENT DATE: 20230101
